FAERS Safety Report 4685501-3 (Version None)
Quarter: 2005Q2

REPORT INFORMATION
  Report Type: 
  Country: None (occurrence: None)
  Receive Date: 20050608
  Receipt Date: 20050531
  Transmission Date: 20051028
  Serious: Yes (Hospitalization)
  Sender: FDA-Public Use
  Company Number: FR-BRISTOL-MYERS SQUIBB COMPANY-12989802

PATIENT
  Age: 79 Year
  Sex: Female

DRUGS (4)
  1. APROVEL TABS [Suspect]
     Indication: HYPERTENSION
     Route: 048
     Dates: end: 20050201
  2. ATHYMIL [Suspect]
     Indication: DEPRESSION
     Dates: end: 20050201
  3. DIAZEPAM [Concomitant]
  4. IMOVANE [Concomitant]

REACTIONS (4)
  - ANAEMIA [None]
  - DYSPNOEA [None]
  - LEUKOPENIA [None]
  - NEUTROPENIA [None]
